FAERS Safety Report 8238786-0 (Version None)
Quarter: 2012Q1

REPORT INFORMATION
  Report Type: 
  Country: None (occurrence: None)
  Receive Date: 20120327
  Receipt Date: 20120319
  Transmission Date: 20120608
  Serious: Yes (Other)
  Sender: FDA-Public Use
  Company Number: US-ELI_LILLY_AND_COMPANY-US201201007025

PATIENT
  Age: 74 Year
  Sex: Female
  Weight: 79.819 kg

DRUGS (1)
  1. FORTEO [Suspect]
     Indication: OSTEOPOROSIS
     Dosage: 20 UG, QD
     Route: 058
     Dates: start: 20111122

REACTIONS (5)
  - METASTASES TO PERITONEUM [None]
  - OVARIAN CANCER METASTATIC [None]
  - PELVIC FRACTURE [None]
  - MALAISE [None]
  - METASTASES TO LIVER [None]
